FAERS Safety Report 11936073 (Version 2)
Quarter: 2016Q3

REPORT INFORMATION
  Report Type: Report from Study
  Country: US (occurrence: US)
  Receive Date: 20160121
  Receipt Date: 20160726
  Transmission Date: 20161109
  Serious: No
  Sender: FDA-Public Use
  Company Number: US-AMGEN-USASL2015122862

PATIENT
  Age: 70 Year
  Sex: Female

DRUGS (2)
  1. KYPROLIS [Suspect]
     Active Substance: CARFILZOMIB
     Indication: PLASMA CELL MYELOMA
     Dosage: 51 MG
     Route: 065
     Dates: start: 2013
  2. REVLIMID [Concomitant]
     Active Substance: LENALIDOMIDE
     Dosage: UNK UNK, 2 TIMES/WK

REACTIONS (3)
  - Abdominal discomfort [Not Recovered/Not Resolved]
  - Gastrointestinal disorder [Not Recovered/Not Resolved]
  - Diarrhoea [Not Recovered/Not Resolved]

NARRATIVE: CASE EVENT DATE: 201605
